FAERS Safety Report 6570941-8 (Version None)
Quarter: 2010Q1

REPORT INFORMATION
  Report Type: 
  Country: None (occurrence: None)
  Receive Date: 20100203
  Receipt Date: 20100203
  Transmission Date: 20100710
  Serious: Yes (Life-Threatening, Disabling)
  Sender: FDA-Public Use
  Company Number: None

PATIENT
  Sex: Female
  Weight: 60.782 kg

DRUGS (2)
  1. ADVAIR DISKUS 250/50 [Suspect]
     Indication: ASTHMA
     Dosage: 250MCG/50MCG 2 TIMES A DAY INHAL
     Route: 055
     Dates: start: 20040410, end: 20081009
  2. BOTOX [Concomitant]

REACTIONS (3)
  - IMPAIRED WORK ABILITY [None]
  - OSTEOPOROSIS [None]
  - SPASMODIC DYSPHONIA [None]
